FAERS Safety Report 8949131 (Version 2)
Quarter: 2012Q4

REPORT INFORMATION
  Report Type: 
  Country: RO (occurrence: RO)
  Receive Date: 20121206
  Receipt Date: 20121214
  Transmission Date: 20130627
  Serious: Yes (Death, Other)
  Sender: FDA-Public Use
  Company Number: RO-PFIZER INC-2012305030

PATIENT
  Age: 83 Year
  Sex: Male
  Weight: 98 kg

DRUGS (4)
  1. INSPRA [Suspect]
     Indication: CARDIAC INSUFFICIENCY
     Dosage: 25 mg, UNK
     Route: 048
     Dates: start: 201208
  2. TENAXUM [Concomitant]
     Indication: HYPERTENSION
     Dosage: 1 mg, UNK
     Route: 048
     Dates: start: 2011
  3. ANGEDIL [Concomitant]
     Indication: ANGINA PECTORIS
     Dosage: 20 mg, 2x/day
     Route: 048
     Dates: start: 201209
  4. AMLODIPINE BESILATE / RAMIPRIL [Concomitant]
     Indication: HYPERTENSION
     Dosage: ramipril 10 mg, amlodipine 5 mg
     Route: 048
     Dates: start: 201210

REACTIONS (3)
  - Death [Fatal]
  - Dementia [Not Recovered/Not Resolved]
  - Delirium [Not Recovered/Not Resolved]
